FAERS Safety Report 8790148 (Version 2)
Quarter: 2012Q4

REPORT INFORMATION
  Report Type: 
  Country: US (occurrence: US)
  Receive Date: 20120917
  Receipt Date: 20121015
  Transmission Date: 20130627
  Serious: Yes (Death)
  Sender: FDA-Public Use
  Company Number: US-CELGENEUS-163-21880-12091242

PATIENT
  Age: 71 Year
  Sex: Female

DRUGS (1)
  1. REVLIMID [Suspect]
     Indication: CHRONIC LYMPHOID LEUKEMIA
     Dosage: 5 Milligram
     Route: 048
     Dates: start: 20120720, end: 20120723

REACTIONS (2)
  - Chronic lymphocytic leukaemia [Fatal]
  - Richter^s syndrome [Fatal]
